FAERS Safety Report 23352987 (Version 1)
Quarter: 2023Q4

REPORT INFORMATION
  Report Type: Spontaneous
  Country: AU (occurrence: AU)
  Receive Date: 20231230
  Receipt Date: 20231230
  Transmission Date: 20240110
  Serious: Yes (Other)
  Sender: FDA-Public Use
  Company Number: AU-LUNDBECK-DKLU3071781

PATIENT
  Age: 49 Year
  Sex: Male
  Weight: 129 kg

DRUGS (11)
  1. CITALOPRAM [Suspect]
     Active Substance: CITALOPRAM HYDROBROMIDE
     Indication: Product used for unknown indication
     Dosage: 20MG ORALLY MANE
     Route: 048
  2. NEBIVOLOL [Suspect]
     Active Substance: NEBIVOLOL
     Indication: Product used for unknown indication
     Route: 065
  3. PROPRANOLOL [Suspect]
     Active Substance: PROPRANOLOL HYDROCHLORIDE
     Indication: Sinus tachycardia
     Dosage: TIME INTERVAL: 0.33333333 DAYS: 10MG TDS PRN
     Route: 048
  4. PROPRANOLOL [Suspect]
     Active Substance: PROPRANOLOL HYDROCHLORIDE
     Indication: Sinus tachycardia
     Dosage: UP TO 40MG PER DAY FOR ANXIETY SYMPTOMS
     Route: 048
  5. THIAMINE [Suspect]
     Active Substance: THIAMINE
     Indication: Product used for unknown indication
     Route: 065
  6. DIAZEPAM [Suspect]
     Active Substance: DIAZEPAM
     Indication: Product used for unknown indication
     Dosage: 5MG ORALLY AT MIDDAY PRN
     Route: 048
  7. NICOTINE [Suspect]
     Active Substance: NICOTINE
     Indication: Product used for unknown indication
     Dosage: REPLACEMENT THRERAPY
     Route: 065
  8. ATROPINE [Suspect]
     Active Substance: ATROPINE\ATROPINE SULFATE
     Indication: Salivary hypersecretion
     Dosage: STRENGTH: 0.1%?DOSE: TWO DROPS NOCTE
     Route: 065
  9. ATORVASTATIN [Suspect]
     Active Substance: ATORVASTATIN
     Indication: Product used for unknown indication
     Dosage: 40MG ORALLY NOCTE
     Route: 048
  10. RABEPRAZOLE [Suspect]
     Active Substance: RABEPRAZOLE
     Indication: Product used for unknown indication
     Dosage: 20MG ORALLY MANE
     Route: 048
  11. CARIPRAZINE [Suspect]
     Active Substance: CARIPRAZINE
     Indication: Product used for unknown indication
     Route: 065
     Dates: start: 20221223

REACTIONS (13)
  - Electrocardiogram ST-T change [Unknown]
  - Diarrhoea [Recovered/Resolved]
  - Blood calcium abnormal [Unknown]
  - Blood glucose increased [Unknown]
  - QRS axis abnormal [Unknown]
  - Left ventricular hypertrophy [Unknown]
  - Electrocardiogram QT prolonged [Unknown]
  - Blood prolactin abnormal [Unknown]
  - Blood urea abnormal [Unknown]
  - Liver function test abnormal [Unknown]
  - Sleep apnoea syndrome [Unknown]
  - Vitamin D abnormal [Unknown]
  - Orthostatic hypotension [Recovering/Resolving]
